FAERS Safety Report 5326898-0 (Version None)
Quarter: 2007Q2

REPORT INFORMATION
  Report Type: 
  Country: None (occurrence: None)
  Receive Date: 20070511
  Receipt Date: 20070426
  Transmission Date: 20071010
  Serious: Yes (Other)
  Sender: FDA-Public Use
  Company Number: 8023640

PATIENT

DRUGS (1)
  1. EQUASYM [Suspect]
     Dosage: 30 MG/D

REACTIONS (1)
  - TIC [None]
